FAERS Safety Report 6395225-2 (Version None)
Quarter: 2009Q4

REPORT INFORMATION
  Report Type: 
  Country: None (occurrence: None)
  Receive Date: 20091009
  Receipt Date: 20090928
  Transmission Date: 20100525
  Serious: Yes (Hospitalization, Other)
  Sender: FDA-Public Use
  Company Number: US-JNJFOC-20090705942

PATIENT
  Sex: Female
  Weight: 57.15 kg

DRUGS (1)
  1. ULTRAM ER [Suspect]
     Indication: PAIN
     Route: 048
     Dates: start: 20090625, end: 20090627

REACTIONS (3)
  - CONVULSION [None]
  - DRUG INEFFECTIVE [None]
  - GUILLAIN-BARRE SYNDROME [None]
